FAERS Safety Report 8850679 (Version 1)
Quarter: 2012Q4

REPORT INFORMATION
  Report Type: 
  Country: FR (occurrence: FR)
  Receive Date: 20121019
  Receipt Date: 20121019
  Transmission Date: 20130627
  Serious: Yes (Hospitalization)
  Sender: FDA-Public Use
  Company Number: FR-B.I. PHARMACEUTICALS,INC./RIDGEFIELD-2012-FF-01466FF

PATIENT
  Sex: Male

DRUGS (4)
  1. PRADAXA [Suspect]
     Indication: ATRIAL FIBRILLATION
     Dosage: 300 mg
     Route: 048
     Dates: start: 20120928, end: 20121001
  2. CRESTOR [Concomitant]
     Indication: HYPERCHOLESTEROLAEMIA
  3. ALTEISDUO [Concomitant]
     Indication: HYPERTENSION
  4. ZANIDIP [Concomitant]
     Indication: HYPERTENSION

REACTIONS (3)
  - Acute coronary syndrome [Recovered/Resolved]
  - Coronary artery occlusion [Recovered/Resolved]
  - Respiratory distress [Recovered/Resolved]
